FAERS Safety Report 21236726 (Version 1)
Quarter: 2022Q3

REPORT INFORMATION
  Report Type: Spontaneous
  Country: US (occurrence: US)
  Receive Date: 20220822
  Receipt Date: 20220822
  Transmission Date: 20221026
  Serious: Yes (Other)
  Sender: FDA-Public Use
  Company Number: US-ENDO PHARMACEUTICALS INC-2022-004742

PATIENT
  Age: 37 Year
  Sex: Female
  Weight: 131.52 kg

DRUGS (1)
  1. PERCOCET [Suspect]
     Active Substance: ACETAMINOPHEN\OXYCODONE HYDROCHLORIDE
     Indication: Pain
     Dosage: 6 DF, DAILY
     Route: 065

REACTIONS (5)
  - Cyanosis [Recovered/Resolved]
  - Pulse absent [Recovered/Resolved]
  - Loss of consciousness [Recovered/Resolved]
  - Apnoea [Recovered/Resolved]
  - Respiratory arrest [Recovered/Resolved]

NARRATIVE: CASE EVENT DATE: 20160405
